FAERS Safety Report 10574697 (Version 1)
Quarter: 2014Q4

REPORT INFORMATION
  Report Type: Spontaneous
  Country: US (occurrence: US)
  Receive Date: 20141110
  Receipt Date: 20141110
  Transmission Date: 20150529
  Serious: Yes (Hospitalization, Other)
  Sender: FDA-Public Use
  Company Number: US-TEVA-520951USA

PATIENT
  Age: 55 Year
  Sex: Female
  Weight: 58.11 kg

DRUGS (10)
  1. FAMOTIDINE. [Concomitant]
     Active Substance: FAMOTIDINE
     Dosage: 40 MILLIGRAM DAILY;
     Route: 048
  2. ADVAIR DISKUS [Concomitant]
     Active Substance: FLUTICASONE PROPIONATE\SALMETEROL XINAFOATE
     Dosage: 250 MG/50 MCG
  3. COPAXONE [Suspect]
     Active Substance: GLATIRAMER ACETATE
     Indication: MULTIPLE SCLEROSIS
  4. LYRICA [Concomitant]
     Active Substance: PREGABALIN
     Dosage: 225 MILLIGRAM DAILY;
  5. BACLOFEN. [Concomitant]
     Active Substance: BACLOFEN
     Dosage: 40 MILLIGRAM DAILY;
  6. SIMVASTATIN. [Concomitant]
     Active Substance: SIMVASTATIN
     Dosage: 20 MILLIGRAM DAILY;
     Route: 048
  7. MODAFINIL. [Concomitant]
     Active Substance: MODAFINIL
     Dosage: 200 MILLIGRAM DAILY;
     Route: 048
  8. MEDROXYPROGESTERONE [Concomitant]
     Active Substance: MEDROXYPROGESTERONE
     Dosage: 10 MILLIGRAM DAILY;
     Route: 048
  9. LISINOPRIL. [Concomitant]
     Active Substance: LISINOPRIL
     Dosage: 20 MILLIGRAM DAILY;
     Route: 048
  10. ESTRADIOL. [Concomitant]
     Active Substance: ESTRADIOL
     Dosage: 1 MILLIGRAM DAILY;
     Route: 048

REACTIONS (1)
  - Cellulitis [Unknown]

NARRATIVE: CASE EVENT DATE: 20140701
